FAERS Safety Report 5742434-9 (Version None)
Quarter: 2008Q2

REPORT INFORMATION
  Report Type: 
  Country: None (occurrence: None)
  Receive Date: 20080519
  Receipt Date: 20080507
  Transmission Date: 20081010
  Serious: Yes (Congenital Anomaly)
  Sender: FDA-Public Use
  Company Number: GB-TEVA-171342ISR

PATIENT

DRUGS (1)
  1. CABERGOLINE [Suspect]
     Route: 064
     Dates: start: 20070701, end: 20071220

REACTIONS (1)
  - HOLOPROSENCEPHALY [None]
